FAERS Safety Report 24259932 (Version 1)
Quarter: 2024Q3

REPORT INFORMATION
  Report Type: Spontaneous
  Country: US (occurrence: None)
  Receive Date: 20240827
  Receipt Date: 20240827
  Transmission Date: 20241017
  Serious: No
  Sender: Public
  Company Number: None

PATIENT
  Age: 46 Year
  Sex: Female

DRUGS (4)
  1. TALTZ [Suspect]
     Active Substance: IXEKIZUMAB
  2. LEVOTHYROXINE [Concomitant]
  3. VENLAFAXINE [Concomitant]
  4. LACOSAMIDE [Concomitant]
     Dosage: OTHER FREQUENCY : EVERY4WKSASDIR;?
     Dates: start: 202104

REACTIONS (1)
  - Cerebral disorder [None]
